FAERS Safety Report 5268249-6 (Version None)
Quarter: 2007Q1

REPORT INFORMATION
  Report Type: 
  Country: None (occurrence: None)
  Receive Date: 20070316
  Receipt Date: 20070316
  Transmission Date: 20070707
  Serious: Yes (Other)
  Sender: FDA-Public Use
  Company Number: None

PATIENT
  Sex: Male
  Weight: 64.4108 kg

DRUGS (3)
  1. LEXAPRO [Suspect]
     Indication: PANIC DISORDER
     Dosage: 10MG  ONE DAILY  PO
     Route: 048
     Dates: start: 20070305, end: 20070309
  2. XANAX [Concomitant]
  3. AMBIEN [Concomitant]

REACTIONS (1)
  - BLOOD PRESSURE INCREASED [None]
